FAERS Safety Report 4358025-0 (Version None)
Quarter: 2004Q2

REPORT INFORMATION
  Report Type: 
  Country: None (occurrence: None)
  Receive Date: 20040513
  Receipt Date: 20040513
  Transmission Date: 20050107
  Serious: Yes (Other)
  Sender: FDA-Public Use
  Company Number: None

PATIENT
  Sex: Female
  Weight: 100 kg

DRUGS (2)
  1. TPA [Suspect]
     Indication: METASTATIC NEOPLASM
     Dosage: 60MG QD X 5 DAYS
     Dates: start: 20040510
  2. CAPTOPRIL [Suspect]
     Dosage: 50 MG PO QD
     Route: 048
     Dates: start: 20040510

REACTIONS (2)
  - DRUG TOXICITY [None]
  - HAEMOGLOBIN DECREASED [None]
